FAERS Safety Report 17508768 (Version 5)
Quarter: 2023Q1

REPORT INFORMATION
  Report Type: Spontaneous
  Country: US (occurrence: US)
  Receive Date: 20200306
  Receipt Date: 20230109
  Transmission Date: 20230417
  Serious: No
  Sender: FDA-Public Use
  Company Number: US-JNJFOC-20200303001

PATIENT
  Age: 57 Year
  Sex: Male
  Weight: 79.904 kg

DRUGS (4)
  1. DURAGESIC [Suspect]
     Active Substance: FENTANYL
     Indication: Pain
     Dosage: ALSO REPORTED AS STARTED IN 2000 OR 2001
     Route: 062
     Dates: start: 2010
  2. DURAGESIC [Suspect]
     Active Substance: FENTANYL
     Route: 062
  3. DURAGESIC [Suspect]
     Active Substance: FENTANYL
     Route: 062
  4. DURAGESIC [Suspect]
     Active Substance: FENTANYL
     Route: 062

REACTIONS (5)
  - Pain [Not Recovered/Not Resolved]
  - Therapeutic response decreased [Unknown]
  - Drug resistance [Not Recovered/Not Resolved]
  - Fall [Recovered/Resolved]
  - Muscle spasms [Recovered/Resolved]
